FAERS Safety Report 8600777-5 (Version None)
Quarter: 2012Q3

REPORT INFORMATION
  Report Type: 
  Country: None (occurrence: None)
  Receive Date: 20120817
  Receipt Date: 20120807
  Transmission Date: 20120928
  Serious: Yes (Hospitalization)
  Sender: FDA-Public Use
  Company Number: US-BAYER-2012-033403

PATIENT
  Age: 20 Year
  Sex: Female
  Weight: 84 kg

DRUGS (3)
  1. YASMIN [Suspect]
     Indication: ACNE
  2. NEXIUM [Concomitant]
  3. YASMIN [Suspect]
     Indication: CONTRACEPTION
     Dosage: UNK
     Dates: start: 20051001, end: 20081101

REACTIONS (12)
  - BACK PAIN [None]
  - CONSTIPATION [None]
  - CHOLECYSTITIS ACUTE [None]
  - PAINFUL DEFAECATION [None]
  - GALLBLADDER NON-FUNCTIONING [None]
  - NAUSEA [None]
  - HYPERHIDROSIS [None]
  - ABDOMINAL PAIN [None]
  - DIZZINESS [None]
  - GASTROINTESTINAL MOTILITY DISORDER [None]
  - INJURY [None]
  - EMOTIONAL DISTRESS [None]
